FAERS Safety Report 6977944-X (Version None)
Quarter: 2010Q3

REPORT INFORMATION
  Report Type: 
  Country: None (occurrence: None)
  Receive Date: 20100913
  Receipt Date: 20100903
  Transmission Date: 20110219
  Serious: Yes (Other)
  Sender: FDA-Public Use
  Company Number: GB-PFIZER INC-2010112034

PATIENT
  Age: 86 Year
  Sex: Female

DRUGS (1)
  1. TOVIAZ [Suspect]
     Dosage: 4 MG, UNK

REACTIONS (4)
  - ERYTHEMA [None]
  - LACRIMATION INCREASED [None]
  - MACULAR DEGENERATION [None]
  - SEASONAL ALLERGY [None]
